FAERS Safety Report 19225295 (Version 1)
Quarter: 2021Q2

REPORT INFORMATION
  Report Type: Spontaneous
  Country: US (occurrence: US)
  Receive Date: 20210506
  Receipt Date: 20210506
  Transmission Date: 20210717
  Serious: Yes (Other)
  Sender: FDA-Public Use
  Company Number: US-TELIGENT, INC-20210400042

PATIENT

DRUGS (2)
  1. LIDOCAINE. [Suspect]
     Active Substance: LIDOCAINE
     Indication: ANAESTHESIA
     Dosage: 3 MILLILITER
  2. EPINEPHRINE. [Suspect]
     Active Substance: EPINEPHRINE
     Indication: ANAESTHESIA

REACTIONS (2)
  - Hypertension [Unknown]
  - Facial paralysis [Recovered/Resolved]
